FAERS Safety Report 6349323-X (Version None)
Quarter: 2009Q3

REPORT INFORMATION
  Report Type: 
  Country: None (occurrence: None)
  Receive Date: 20090911
  Receipt Date: 20090903
  Transmission Date: 20100115
  Serious: Yes (Hospitalization)
  Sender: FDA-Public Use
  Company Number: B0592513A

PATIENT
  Age: 9 Year
  Sex: Female

DRUGS (6)
  1. LAMIVUDINE [Suspect]
     Indication: HIV INFECTION
  2. STAVUDINE [Suspect]
     Indication: HIV INFECTION
  3. EFAVIRENZ [Suspect]
     Indication: HIV INFECTION
  4. BROAD-SPECTRUM ANTIBIOTIC [Concomitant]
  5. LORAZEPAM [Concomitant]
     Dosage: .5MG AT NIGHT
  6. NEVIRAPINE [Concomitant]
     Indication: HIV INFECTION

REACTIONS (19)
  - AGITATION [None]
  - ANXIETY [None]
  - APATHY [None]
  - CONFUSIONAL STATE [None]
  - DECREASED APPETITE [None]
  - DELIRIUM [None]
  - DELUSION [None]
  - DEPRESSION [None]
  - DISINHIBITION [None]
  - EMOTIONAL DISTRESS [None]
  - EUPHORIC MOOD [None]
  - FEAR [None]
  - FEELING ABNORMAL [None]
  - HALLUCINATION, AUDITORY [None]
  - HALLUCINATION, VISUAL [None]
  - IMMUNE RECONSTITUTION SYNDROME [None]
  - LETHARGY [None]
  - NIGHTMARE [None]
  - POOR QUALITY SLEEP [None]
